FAERS Safety Report 26091913 (Version 1)
Quarter: 2025Q4

REPORT INFORMATION
  Report Type: Spontaneous
  Country: EU (occurrence: EU)
  Receive Date: 20251126
  Receipt Date: 20251126
  Transmission Date: 20260117
  Serious: Yes (Death, Other)
  Sender: GLAXOSMITHKLINE
  Company Number: EU-GSK-NL2025EME102246

PATIENT
  Sex: Male

DRUGS (1)
  1. DOSTARLIMAB [Suspect]
     Active Substance: DOSTARLIMAB
     Indication: Colorectal cancer metastatic
     Dosage: 500 MG (50 MG/ML) 10 ML (500 MG))/(2 VIALS (FOR 6 WEEKS)

REACTIONS (2)
  - Death [Fatal]
  - Off label use [Unknown]
